FAERS Safety Report 8932554 (Version 1)
Quarter: 2012Q4

REPORT INFORMATION
  Report Type: Spontaneous
  Country: US (occurrence: None)
  Receive Date: 20121121
  Receipt Date: 20121121
  Transmission Date: 20130627
  Serious: Yes (Life-Threatening, Other)
  Sender: FDA-Public Use
  Company Number: None

PATIENT
  Sex: Female
  Weight: 56.25 kg

DRUGS (3)
  1. MELOXICAM 15 MG TAB MYL MYLAN (A YELLOW-ROUND TAB IMPRINTED M [Suspect]
     Indication: SCIATICA
     Dates: start: 20120925, end: 20121001
  2. MELOXICAM 15 MG TAB MYL MYLAN (A YELLOW-ROUND TAB IMPRINTED M [Suspect]
     Indication: SCIATICA
     Dates: start: 20121009, end: 20121013
  3. MELOXICAM 15 MG TAB MYL MYLAN (A YELLOW-ROUND TAB IMPRINTED M [Suspect]
     Indication: SCIATICA
     Dates: start: 20121019

REACTIONS (1)
  - Chest pain [None]
